FAERS Safety Report 14909786 (Version 14)
Quarter: 2019Q3

REPORT INFORMATION
  Report Type: Spontaneous
  Country: CA (occurrence: CA)
  Receive Date: 20180517
  Receipt Date: 20190904
  Transmission Date: 20191004
  Serious: Yes (Hospitalization, Other)
  Sender: FDA-Public Use
  Company Number: CA-CELLTRION INC.-2018CA019823

PATIENT

DRUGS (21)
  1. INFLECTRA [Suspect]
     Active Substance: INFLIXIMAB-DYYB
     Dosage: 10 MG/KG, EVERY 0, 2, 6, WEEKS THEN EVERY 4 WEEKS
     Route: 042
     Dates: start: 20190826
  2. INFLECTRA [Suspect]
     Active Substance: INFLIXIMAB-DYYB
     Dosage: 5 MG/KG (OR 363.5MG), CYCLIC (EVERY 4 WEEKS)
     Route: 042
     Dates: start: 20180706, end: 20181120
  3. MESALAMINE. [Concomitant]
     Active Substance: MESALAMINE
     Dosage: 48 MG, DAILY
     Route: 048
  4. INFLECTRA [Suspect]
     Active Substance: INFLIXIMAB-DYYB
     Dosage: 10 MG/KG, EVERY 0, 2, 6, WEEKS THEN EVERY 4 WEEKS
     Route: 042
     Dates: start: 20190627
  5. INFLECTRA [Suspect]
     Active Substance: INFLIXIMAB-DYYB
     Dosage: 5 MG/KG, ON 2, 6 WEEKS, THEN EVERY 8 WEEKS
     Route: 042
     Dates: start: 20180611, end: 20180611
  6. INFLECTRA [Suspect]
     Active Substance: INFLIXIMAB-DYYB
     Dosage: 5 MG/KG (OR 363.5MG), CYCLIC (EVERY 4 WEEKS)
     Route: 042
     Dates: start: 20181120
  7. INFLECTRA [Suspect]
     Active Substance: INFLIXIMAB-DYYB
     Dosage: 10 MG/KG, 0, 2, 6 WEEKS THEN EVERY 4 WEEKS
     Route: 042
     Dates: start: 20190118
  8. INFLECTRA [Suspect]
     Active Substance: INFLIXIMAB-DYYB
     Dosage: 10 MG/KG, EVERY 0, 2, 6, WEEKS THEN EVERY 4 WEEKS
     Route: 042
     Dates: start: 20190312
  9. INFLECTRA [Suspect]
     Active Substance: INFLIXIMAB-DYYB
     Dosage: 10 MG/KG, EVERY 0, 2, 6, WEEKS THEN EVERY 4 WEEKS
     Route: 042
     Dates: start: 20190729
  10. INFLECTRA [Suspect]
     Active Substance: INFLIXIMAB-DYYB
     Indication: COLITIS ULCERATIVE
     Dosage: 5 MG/KG, ON 2, 6 WEEKS, THEN EVERY 8 WEEKS
     Route: 042
     Dates: start: 20180126
  11. INFLECTRA [Suspect]
     Active Substance: INFLIXIMAB-DYYB
     Dosage: 10 MG/KG, THEN EVERY 8 WEEKS
     Route: 042
     Dates: start: 20190128
  12. INFLECTRA [Suspect]
     Active Substance: INFLIXIMAB-DYYB
     Dosage: 10 MG/KG, EVERY 0, 2, 6, WEEKS THEN EVERY 4 WEEKS
     Route: 042
     Dates: start: 20190312
  13. INFLECTRA [Suspect]
     Active Substance: INFLIXIMAB-DYYB
     Dosage: 5 MG/KG, ON 2, 6 WEEKS, THEN EVERY 8 WEEKS
     Route: 042
     Dates: start: 20180312
  14. INFLECTRA [Suspect]
     Active Substance: INFLIXIMAB-DYYB
     Dosage: 5 MG/KG (OR 363.5MG), (EVERY 4 WEEKS)
     Route: 042
     Dates: start: 20180803
  15. INFLECTRA [Suspect]
     Active Substance: INFLIXIMAB-DYYB
     Dosage: 10 MG/KG, EVERY 0, 2, 6, WEEKS THEN EVERY 4 WEEKS
     Route: 042
     Dates: start: 20190729
  16. INFLECTRA [Suspect]
     Active Substance: INFLIXIMAB-DYYB
     Dosage: 10 MG/KG, (EVERY 8 WEEKS)
     Route: 042
     Dates: start: 20181219, end: 20181219
  17. PREDNISONE. [Concomitant]
     Active Substance: PREDNISONE
     Dosage: 40 MG, DAILY (TAPERING DOSE)
     Route: 048
  18. REACTINE [Concomitant]
     Dosage: UNK, AS NEEDED
  19. INFLECTRA [Suspect]
     Active Substance: INFLIXIMAB-DYYB
     Dosage: 5 MG/KG, ON 2, 6 WEEKS, THEN EVERY 8 WEEKS
     Route: 042
     Dates: start: 20180312
  20. INFLECTRA [Suspect]
     Active Substance: INFLIXIMAB-DYYB
     Dosage: 5 MG/KG (OR 363.5MG), (EVERY 4 WEEKS)
     Route: 042
     Dates: start: 20181024
  21. INFLECTRA [Suspect]
     Active Substance: INFLIXIMAB-DYYB
     Dosage: 10 MG/KG, EVERY 0, 2, 6, WEEKS THEN EVERY 4 WEEKS
     Route: 042
     Dates: start: 20190312

REACTIONS (7)
  - Drug level below therapeutic [Unknown]
  - Weight decreased [Unknown]
  - Incorrect dose administered [Unknown]
  - Pharyngitis streptococcal [Unknown]
  - Condition aggravated [Recovered/Resolved]
  - Drug ineffective [Unknown]
  - Off label use [Unknown]

NARRATIVE: CASE EVENT DATE: 2018
